FAERS Safety Report 7759674-X (Version None)
Quarter: 2011Q3

REPORT INFORMATION
  Report Type: 
  Country: None (occurrence: None)
  Receive Date: 20110919
  Receipt Date: 20110906
  Transmission Date: 20111222
  Serious: Yes (Hospitalization)
  Sender: FDA-Public Use
  Company Number: US-JNJFOC-20110904024

PATIENT
  Sex: Female
  Weight: 79.38 kg

DRUGS (2)
  1. ELMIRON [Suspect]
     Route: 048
  2. ELMIRON [Suspect]
     Indication: CYSTITIS INTERSTITIAL
     Route: 048
     Dates: start: 19990101

REACTIONS (3)
  - COLON CANCER [None]
  - PRODUCT QUALITY ISSUE [None]
  - MEDICATION ERROR [None]
